FAERS Safety Report 24078017 (Version 1)
Quarter: 2024Q3

REPORT INFORMATION
  Report Type: Spontaneous
  Country: ES (occurrence: ES)
  Receive Date: 20240711
  Receipt Date: 20240711
  Transmission Date: 20241017
  Serious: Yes (Other)
  Sender: XELLIA PHARMACEUTICALS
  Company Number: None

PATIENT
  Age: 77 Year
  Sex: Male

DRUGS (9)
  1. DAPTOMYCIN [Suspect]
     Active Substance: DAPTOMYCIN
     Indication: Endocarditis
     Dates: start: 20240326, end: 20240404
  2. LYRICA [Concomitant]
     Active Substance: PREGABALIN
     Dosage: 56 CAPSULES
     Dates: start: 20210504
  3. PRADAXA [Concomitant]
     Active Substance: DABIGATRAN ETEXILATE MESYLATE
     Dosage: 60 CAPSULES
     Dates: start: 20240229
  4. OMEPRAZOLE [Concomitant]
     Active Substance: OMEPRAZOLE
     Dosage: 28 CAPSULES
     Dates: start: 20210913
  5. NOLOTIL [Concomitant]
     Dosage: 20 CAPSULES
     Dates: start: 20220304
  6. FUROSEMIDE [Concomitant]
     Active Substance: FUROSEMIDE
     Dosage: 30 TABLETS
     Dates: start: 20211029
  7. BISOPROLOL [Concomitant]
     Active Substance: BISOPROLOL\BISOPROLOL FUMARATE
     Dosage: 28 TABLETS
     Dates: start: 20211029
  8. ACETAMINOPHEN\TRAMADOL HYDROCHLORIDE [Concomitant]
     Active Substance: ACETAMINOPHEN\TRAMADOL HYDROCHLORIDE
     Dosage: 75 MG/650 MG, 60 TABLETS (BLISTER)
     Dates: start: 20220314
  9. LYRICA [Concomitant]
     Active Substance: PREGABALIN
     Dosage: 56 CAPSULES
     Dates: start: 20211129

REACTIONS (1)
  - Pneumonitis [Recovered/Resolved]

NARRATIVE: CASE EVENT DATE: 20240402
